FAERS Safety Report 22293867 (Version 2)
Quarter: 2023Q2

REPORT INFORMATION
  Report Type: Spontaneous
  Country: US (occurrence: US)
  Receive Date: 20230508
  Receipt Date: 20230523
  Transmission Date: 20230722
  Serious: Yes (Other)
  Sender: FDA-Public Use
  Company Number: US-BIOCODEX2-2023000026

PATIENT
  Age: 5 Year
  Sex: Female
  Weight: 17.6 kg

DRUGS (5)
  1. DIACOMIT [Suspect]
     Active Substance: STIRIPENTOL
     Indication: Severe myoclonic epilepsy of infancy
     Dosage: DAY 1-14: 125 MG TWICE DAILY.?DAYS 15 AND THEREAFTER: 250 MG TWICE DAILY.
     Route: 048
     Dates: start: 20220108
  2. DIACOMIT [Suspect]
     Active Substance: STIRIPENTOL
     Indication: Severe myoclonic epilepsy of infancy
     Dosage: 250 MG AND 500 MG BY MOUTH IN TWO SEPARATE DOSES EACH DAY
     Route: 048
     Dates: start: 20220108
  3. DIACOMIT [Suspect]
     Active Substance: STIRIPENTOL
     Indication: Severe myoclonic epilepsy of infancy
     Dosage: 250 MG AND 500 MG BY MOUTH IN TWO SEPARATE DOSES EACH DAY
     Route: 048
     Dates: start: 20230108
  4. CLOBAZAM [Concomitant]
     Active Substance: CLOBAZAM
     Indication: Severe myoclonic epilepsy of infancy
     Route: 065
  5. EPIDIOLEX [Concomitant]
     Active Substance: CANNABIDIOL
     Indication: Product used for unknown indication
     Route: 065

REACTIONS (2)
  - Change in seizure presentation [Recovered/Resolved]
  - Product preparation issue [Unknown]

NARRATIVE: CASE EVENT DATE: 20220108
